FAERS Safety Report 9000971 (Version 1)
Quarter: 2012Q4

REPORT INFORMATION
  Report Type: Spontaneous
  Country: DE (occurrence: None)
  Receive Date: 20121226
  Receipt Date: 20121226
  Transmission Date: 20130627
  Serious: Yes (Life-Threatening, Hospitalization)
  Sender: FDA-Public Use
  Company Number: AG-2012-2016

PATIENT
  Age: 76 Year
  Sex: Female
  Weight: 74 kg

DRUGS (14)
  1. CHLORAMBUCIL (CHLORAMBUCIL) (UNKNOWN) [Suspect]
     Indication: B-CELL LYMPHOMA
     Dosage: 5d/Cycle. (18 Milligram, 5 in 1 Cyclical), Oral
     Route: 048
     Dates: start: 20080526
  2. CHLORAMBUCIL (CHLORAMBUCIL) (UNKNOWN) [Suspect]
     Indication: B-CELL LYMPHOMA
     Dosage: 4D/Cycle. (16 Milligram, 4 in 1 Cyclical), Oral
     Route: 048
     Dates: start: 20080820, end: 20081017
  3. RITUXIMAB [Suspect]
     Indication: B-CELL LYMPHOMA
     Dosage: Once Per Cycle (660 Milligram, 1 in 1 Cyclical), Intravenous (not otherwise specified)
     Route: 042
     Dates: start: 20080526, end: 20081017
  4. MITOXANTRONE [Suspect]
     Indication: B-CELL LYMPHOMA
     Dosage: 2D/Cycle (13 milligram, 2 in 1 Cyclical), Intravenous (not otherwise specified)
     Route: 042
     Dates: start: 20080526
  5. MITOXANTRONE [Suspect]
     Indication: B-CELL LYMPHOMA
     Dosage: 1D/Cycle (21 Milligram, 1 in 1 Cyclical), Intravenous (not otherwise specified)
     Route: 042
     Dates: start: 20080819, end: 20081017
  6. PREDNISONE [Suspect]
     Dosage: (5D/Cycle. (50 milligram, 5 in 1 Cyclical), Oral
     Route: 048
     Dates: start: 20080526, end: 20081017
  7. LANTUS (INSULIN GLARGINE) [Concomitant]
  8. ESIDRIX (HYDROCHLOROTHIAZIDE) [Concomitant]
  9. TEGRETOL (CARBAMAZEPINE) UNKNOWN [Concomitant]
  10. ACTRAPID (INSULINS AND ANALOGUES) [Concomitant]
  11. RAMIPRIL (RAMIPRIL) [Concomitant]
  12. CORTRIM FORTE (SULFAMETHOXAZOLE AND TRIMETHOPRIM) [Concomitant]
  13. NEXIUM (ESOMEPRAZOLE) [Concomitant]
  14. GABAPENTIN (GABAPENTIN) [Concomitant]

REACTIONS (9)
  - Pulmonary embolism [None]
  - Fall [None]
  - Dehydration [None]
  - Polyneuropathy [None]
  - Nausea [None]
  - Vomiting [None]
  - Diarrhoea [None]
  - General physical health deterioration [None]
  - Fluid intake reduced [None]
